FAERS Safety Report 25915930 (Version 2)
Quarter: 2025Q4

REPORT INFORMATION
  Report Type: Report from Study
  Country: JP (occurrence: JP)
  Receive Date: 20251013
  Receipt Date: 20251030
  Transmission Date: 20260117
  Serious: Yes (Death, Other)
  Sender: TAKEDA
  Company Number: JP-TAKEDA-2025TJP010232

PATIENT
  Age: 70 Year
  Sex: Male

DRUGS (1)
  1. FRUQUINTINIB [Suspect]
     Active Substance: FRUQUINTINIB
     Indication: Colon cancer
     Dosage: 5 MILLIGRAM
     Dates: start: 20250812, end: 20251007

REACTIONS (1)
  - Death [Fatal]

NARRATIVE: CASE EVENT DATE: 20251007
